FAERS Safety Report 14133461 (Version 2)
Quarter: 2017Q4

REPORT INFORMATION
  Report Type: Spontaneous
  Country: US (occurrence: US)
  Receive Date: 20171026
  Receipt Date: 20171215
  Transmission Date: 20180321
  Serious: Yes (Hospitalization, Other)
  Sender: FDA-Public Use
  Company Number: US-TAKEDA-2017TUS022031

PATIENT
  Age: 15 Year
  Sex: Male
  Weight: 47.62 kg

DRUGS (2)
  1. METHYLPHENIDATE HYDROCHLORIDE. [Concomitant]
     Active Substance: METHYLPHENIDATE HYDROCHLORIDE
     Indication: ATTENTION DEFICIT/HYPERACTIVITY DISORDER
     Dosage: 10 ML, UNK
     Route: 048
  2. ENTYVIO [Suspect]
     Active Substance: VEDOLIZUMAB
     Indication: CROHN^S DISEASE
     Dosage: 300 MG, UNK
     Route: 042
     Dates: start: 20170119, end: 20170731

REACTIONS (2)
  - Drug administered to patient of inappropriate age [Unknown]
  - Pneumonia necrotising [Recovering/Resolving]

NARRATIVE: CASE EVENT DATE: 20170119
